FAERS Safety Report 7941354-9 (Version None)
Quarter: 2011Q4

REPORT INFORMATION
  Report Type: 
  Country: None (occurrence: None)
  Receive Date: 20111122
  Receipt Date: 20111108
  Transmission Date: 20120403
  Serious: Yes (Life-Threatening)
  Sender: FDA-Public Use
  Company Number: 1000025493

PATIENT
  Age: 9 Decade
  Sex: Male

DRUGS (3)
  1. MEMANTINE HYDROCHLORIDE [Suspect]
     Indication: DEMENTIA ALZHEIMER'S TYPE
     Dosage: 5 MG (5 MG, 1 IN 1 D),ORAL , 105 MG (10 MG, 1 IN 1 D),ORAL
     Route: 048
     Dates: start: 20111001
  2. MEMANTINE HYDROCHLORIDE [Suspect]
     Indication: DEMENTIA ALZHEIMER'S TYPE
     Dosage: 5 MG (5 MG, 1 IN 1 D),ORAL , 105 MG (10 MG, 1 IN 1 D),ORAL
     Route: 048
     Dates: start: 20110101, end: 20110101
  3. MEMANTINE HYDROCHLORIDE [Suspect]
     Indication: DEMENTIA ALZHEIMER'S TYPE
     Dosage: 15 MG (15 MG, 1 IN 1 D),ORAL
     Route: 048
     Dates: start: 20111101, end: 20111101

REACTIONS (4)
  - INCORRECT DOSE ADMINISTERED [None]
  - INTENTIONAL DRUG MISUSE [None]
  - AGITATION [None]
  - SUICIDE ATTEMPT [None]
